FAERS Safety Report 8604741 (Version 4)
Quarter: 2012Q4

REPORT INFORMATION
  Report Type: Report from Study
  Country: MX (occurrence: MX)
  Receive Date: 20120608
  Receipt Date: 20121228
  Transmission Date: 20130627
  Serious: Yes (Disabling, Other)
  Sender: FDA-Public Use
  Company Number: MX-BRISTOL-MYERS SQUIBB COMPANY-16446650

PATIENT
  Age: 47 Year
  Sex: Male
  Weight: 56 kg

DRUGS (3)
  1. ERBITUX [Suspect]
     Indication: HEAD AND NECK CANCER
     Dosage: Interrrupt on 23Feb21.day 1 of cycle 1 only
Restat on 29Mar2012:250mg/m2-18Apr2012(21D)
     Route: 042
     Dates: start: 20120223, end: 20120517
  2. CISPLATIN [Suspect]
     Indication: HEAD AND NECK CANCER
     Dosage: day 1,Interr + restarted 12Apr12:Ong:80mg/m2
     Route: 042
     Dates: start: 20120223
  3. 5-FLUOROURACIL [Suspect]
     Indication: HEAD AND NECK CANCER
     Dosage: Days 1-4 Inter + restarted 12Apr12:Ong:600 mg/m2
     Route: 042
     Dates: start: 20120223

REACTIONS (2)
  - Palmar-plantar erythrodysaesthesia syndrome [Recovered/Resolved]
  - Rash [Recovered/Resolved]
